FAERS Safety Report 25535670 (Version 1)
Quarter: 2025Q3

REPORT INFORMATION
  Report Type: Spontaneous
  Country: EU (occurrence: EU)
  Receive Date: 20250709
  Receipt Date: 20250709
  Transmission Date: 20251021
  Serious: Yes (Other)
  Sender: MYLAN
  Company Number: None

PATIENT
  Age: 33 Year
  Sex: Female

DRUGS (4)
  1. TRAMADOL [Suspect]
     Active Substance: TRAMADOL
     Indication: Product used for unknown indication
     Dosage: 1200 MILLIGRAM, QD, 1200MG/D
     Dates: start: 202312
  2. TRAMADOL [Suspect]
     Active Substance: TRAMADOL
     Dosage: 1200 MILLIGRAM, QD, 1200MG/D
     Route: 048
     Dates: start: 202312
  3. TRAMADOL [Suspect]
     Active Substance: TRAMADOL
     Dosage: 1200 MILLIGRAM, QD, 1200MG/D
     Route: 048
     Dates: start: 202312
  4. TRAMADOL [Suspect]
     Active Substance: TRAMADOL
     Dosage: 1200 MILLIGRAM, QD, 1200MG/D
     Dates: start: 202312

REACTIONS (1)
  - Substance use disorder [Not Recovered/Not Resolved]
